FAERS Safety Report 6620044-9 (Version None)
Quarter: 2010Q1

REPORT INFORMATION
  Report Type: 
  Country: None (occurrence: None)
  Receive Date: 20100309
  Receipt Date: 20100227
  Transmission Date: 20100710
  Serious: Yes (Death)
  Sender: FDA-Public Use
  Company Number: US-ROCHE-681900

PATIENT
  Sex: Male

DRUGS (1)
  1. MYCOPHENOLATE MOFETIL [Suspect]
     Dosage: FORM: PILLS. LAST DOSE ON 27 DECEMBER 2009
     Route: 065
     Dates: end: 20091227

REACTIONS (1)
  - GUN SHOT WOUND [None]
